FAERS Safety Report 18377706 (Version 1)
Quarter: 2020Q4

REPORT INFORMATION
  Report Type: Spontaneous
  Country: US (occurrence: US)
  Receive Date: 20201013
  Receipt Date: 20201013
  Transmission Date: 20210114
  Serious: No
  Sender: FDA-Public Use
  Company Number: US-ALLERGAN-2025322US

PATIENT
  Sex: Female

DRUGS (4)
  1. ZOFRAN [Concomitant]
     Active Substance: ONDANSETRON HYDROCHLORIDE
  2. UBRELVY [Suspect]
     Active Substance: UBROGEPANT
     Indication: MIGRAINE
     Dosage: TAKE 1 TABLET BY MOUTH AT FIRST SIGN OF MIGRAINE, TAKING ONE EVERY FEW DAYS
     Route: 048
     Dates: start: 202006
  3. TRIAMTERENE. [Concomitant]
     Active Substance: TRIAMTERENE
  4. NAPROXEN. [Concomitant]
     Active Substance: NAPROXEN

REACTIONS (3)
  - Peripheral swelling [Unknown]
  - Dry mouth [Unknown]
  - Patient dissatisfaction with treatment [Unknown]
